FAERS Safety Report 14587239 (Version 1)
Quarter: 2018Q1

REPORT INFORMATION
  Report Type: Spontaneous
  Country: US (occurrence: US)
  Receive Date: 20180301
  Receipt Date: 20180301
  Transmission Date: 20180509
  Serious: Yes (Hospitalization)
  Sender: FDA-Public Use
  Company Number: US-PARI RESPIRATORY EQUIPMENT, INC.-2018PAR00014

PATIENT
  Sex: Female

DRUGS (7)
  1. KITABIS PAK [Suspect]
     Active Substance: TOBRAMYCIN
     Dosage: UNK UNK, 2X/DAY ^28 DAY CYCLE^
     Dates: start: 20180205
  2. PULMOZYME [Concomitant]
     Active Substance: DORNASE ALFA
  3. HYPERSAL [Concomitant]
  4. ATROVENT [Concomitant]
     Active Substance: IPRATROPIUM BROMIDE
  5. XOPENEX [Concomitant]
     Active Substance: LEVALBUTEROL HYDROCHLORIDE
  6. KITABIS PAK [Suspect]
     Active Substance: TOBRAMYCIN
     Indication: LUNG DISORDER
     Dosage: 300 MG, 2X/DAY FOR 28 DAYS AND 28 DAYS OFF
     Route: 055
     Dates: start: 20171027
  7. PULMICORT TURBUHALER [Concomitant]
     Active Substance: BUDESONIDE

REACTIONS (5)
  - Gastrointestinal motility disorder [Not Recovered/Not Resolved]
  - Pulmonary hypertension [Not Recovered/Not Resolved]
  - Pneumonia [Recovering/Resolving]
  - Gastrointestinal disorder [Not Recovered/Not Resolved]
  - Respiratory disorder [Recovering/Resolving]
